FAERS Safety Report 4372654-X (Version None)
Quarter: 2004Q2

REPORT INFORMATION
  Report Type: 
  Country: None (occurrence: None)
  Receive Date: 20040526
  Receipt Date: 20040517
  Transmission Date: 20050107
  Serious: Yes (Other)
  Sender: FDA-Public Use
  Company Number: US-JNJFOC-20040504183

PATIENT
  Sex: 0

DRUGS (1)
  1. REOPRO [Suspect]
     Dosage: INTRAVENOUS
     Route: 042

REACTIONS (1)
  - PULMONARY FIBROSIS [None]
